FAERS Safety Report 15793617 (Version 1)
Quarter: 2019Q1

REPORT INFORMATION
  Report Type: Spontaneous
  Country: CA (occurrence: CA)
  Receive Date: 20190105
  Receipt Date: 20190105
  Transmission Date: 20190417
  Serious: Yes (Disabling, Other)
  Sender: FDA-Public Use
  Company Number: None

PATIENT
  Age: 30 Year
  Sex: Female
  Weight: 54 kg

DRUGS (4)
  1. ATIVAN (AS NEEDED) [Concomitant]
  2. EFFEXOR XR [Suspect]
     Active Substance: VENLAFAXINE HYDROCHLORIDE
     Indication: POST-TRAUMATIC STRESS DISORDER
  3. SYNTHROID [Concomitant]
     Active Substance: LEVOTHYROXINE SODIUM
  4. VITAMIN D [Concomitant]
     Active Substance: CHOLECALCIFEROL

REACTIONS (29)
  - Withdrawal syndrome [None]
  - Condition aggravated [None]
  - Hypoacusis [None]
  - Anxiety [None]
  - Abnormal dreams [None]
  - Pain in jaw [None]
  - Bruxism [None]
  - Muscle twitching [None]
  - Photosensitivity reaction [None]
  - Diplopia [None]
  - Cerebral disorder [None]
  - Infection [None]
  - Irritability [None]
  - Hypersensitivity [None]
  - Sensory overload [None]
  - Hyperacusis [None]
  - Disturbance in attention [None]
  - Mydriasis [None]
  - Agitation [None]
  - Insomnia [None]
  - Amnesia [None]
  - Headache [None]
  - Blood cholesterol increased [None]
  - Tinnitus [None]
  - Microcytic anaemia [None]
  - Impaired work ability [None]
  - Tooth fracture [None]
  - Eye pain [None]
  - Pupillary light reflex tests abnormal [None]
